FAERS Safety Report 5027686-5 (Version None)
Quarter: 2006Q2

REPORT INFORMATION
  Report Type: 
  Country: None (occurrence: None)
  Receive Date: 20060428
  Receipt Date: 20060118
  Transmission Date: 20061013
  Serious: No
  Sender: FDA-Public Use
  Company Number: COT_0393_2006

PATIENT
  Age: 45 Year
  Sex: Male
  Weight: 84.369 kg

DRUGS (3)
  1. VENTAVIS [Suspect]
     Indication: PULMONARY HYPERTENSION
     Dosage: 5 MCG 2- 3X/DAY IH
     Dates: start: 20050621
  2. VENTAVIS [Suspect]
     Indication: PULMONARY HYPERTENSION
     Dosage: 5 MCG 2- 3X/DAY IH
     Dates: start: 20050621
  3. COMBIVENT [Concomitant]

REACTIONS (2)
  - FAILURE OF IMPLANT [None]
  - MOUTH HAEMORRHAGE [None]
